FAERS Safety Report 10029901 (Version 1)
Quarter: 2014Q1

REPORT INFORMATION
  Report Type: Spontaneous
  Country: US (occurrence: None)
  Receive Date: 20140306
  Receipt Date: 20140306
  Transmission Date: 20141002
  Serious: Yes (Death)
  Sender: FDA-Public Use
  Company Number: 163-21880-12110394

PATIENT
  Age: 74 Year
  Sex: Male

DRUGS (5)
  1. REVLIMID (LENALIDOMIDE) (25 MILLIGRAM, CAPSULE) [Suspect]
     Indication: PLASMA CELL MYELOMA
     Route: 048
     Dates: start: 20110127
  2. ASPIRIN (81 MILLIGRAM, ENTERIC-COATED TABLET) [Concomitant]
  3. DEXAMETHASONE (DEXAMETHASONE) (4 MILLIGRAM, ENTERIC-COATED TABLET) [Concomitant]
  4. LORAZEPAM (LORAZEPAM) (1 MILLIGRAM, ENTERIC-COATED TABLET) [Concomitant]
  5. NEXIUM (ESOMEPRAZOLE) [Concomitant]

REACTIONS (1)
  - Pneumonia [None]
